FAERS Safety Report 11477555 (Version 1)
Quarter: 2015Q3

REPORT INFORMATION
  Report Type: Spontaneous
  Country: US (occurrence: US)
  Receive Date: 20150909
  Receipt Date: 20150909
  Transmission Date: 20151125
  Serious: No
  Sender: FDA-Public Use
  Company Number: US-JAZZ-2014-US-011227

PATIENT
  Sex: Female
  Weight: 72.52 kg

DRUGS (9)
  1. XYREM [Suspect]
     Active Substance: SODIUM OXYBATE
     Indication: SLEEP DISORDER
     Dosage: 2.25 G, BID
     Route: 048
     Dates: start: 200909, end: 200910
  2. XYREM [Suspect]
     Active Substance: SODIUM OXYBATE
     Dosage: DOSE ADJUSTMENTS
     Route: 048
  3. GLUCOSAMINE/CHONDROITIN [Concomitant]
     Indication: PRODUCT USED FOR UNKNOWN INDICATION
  4. ESTROGEN/METHYLTES [Concomitant]
     Active Substance: ESTROGENS\METHYLTESTOSTERONE
     Indication: VULVOVAGINAL DRYNESS
  5. XYREM [Suspect]
     Active Substance: SODIUM OXYBATE
     Dosage: 4.5 G, BID
     Route: 048
     Dates: start: 201012
  6. RELAFEN [Concomitant]
     Active Substance: NABUMETONE
     Indication: PAIN
  7. NORCO [Concomitant]
     Active Substance: ACETAMINOPHEN\HYDROCODONE BITARTRATE
     Indication: PAIN
  8. SAVELLA [Concomitant]
     Active Substance: MILNACIPRAN HYDROCHLORIDE
     Indication: FIBROMYALGIA
  9. SIMVASTATIN. [Concomitant]
     Active Substance: SIMVASTATIN
     Indication: HYPERCHOLESTEROLAEMIA

REACTIONS (6)
  - Malaise [Recovered/Resolved]
  - Lethargy [Recovering/Resolving]
  - Infection [Recovered/Resolved]
  - Gastrooesophageal reflux disease [Recovered/Resolved]
  - Off label use [Unknown]
  - Respiratory tract congestion [Recovered/Resolved]

NARRATIVE: CASE EVENT DATE: 2013
